FAERS Safety Report 7962365-3 (Version None)
Quarter: 2011Q4

REPORT INFORMATION
  Report Type: 
  Country: None (occurrence: None)
  Receive Date: 20111207
  Receipt Date: 20111130
  Transmission Date: 20120403
  Serious: Yes (Hospitalization, Disabling)
  Sender: FDA-Public Use
  Company Number: US-MERCK-1106USA01813

PATIENT
  Age: 52 Year
  Sex: Female
  Weight: 78 kg

DRUGS (6)
  1. FOSAMAX [Suspect]
     Route: 048
     Dates: start: 20010101, end: 20100101
  2. FOSAMAX [Suspect]
     Indication: OSTEOPOROSIS
     Route: 048
     Dates: start: 20010101, end: 20100101
  3. FOSAMAX [Suspect]
     Route: 048
     Dates: start: 20010101, end: 20100101
  4. ALLERGENIC EXTRACT [Concomitant]
     Route: 065
     Dates: start: 20080701, end: 20101201
  5. FOSAMAX [Suspect]
     Indication: OSTEOPENIA
     Route: 048
     Dates: start: 20010101, end: 20100101
  6. CALCIUM (UNSPECIFIED) [Concomitant]
     Route: 065
     Dates: start: 19860101

REACTIONS (12)
  - CONJUNCTIVITIS ALLERGIC [None]
  - DEPRESSION [None]
  - FEMUR FRACTURE [None]
  - HEADACHE [None]
  - DERMATITIS CONTACT [None]
  - CYST [None]
  - ECZEMA [None]
  - ARTHRALGIA [None]
  - FALL [None]
  - URTICARIA CHRONIC [None]
  - DERMAL CYST [None]
  - FATIGUE [None]
